FAERS Safety Report 7726740-4 (Version None)
Quarter: 2011Q3

REPORT INFORMATION
  Report Type: 
  Country: None (occurrence: None)
  Receive Date: 20110902
  Receipt Date: 20110819
  Transmission Date: 20111222
  Serious: Yes (Other)
  Sender: FDA-Public Use
  Company Number: US-GLAXOSMITHKLINE-A0746662A

PATIENT
  Age: 59 Year
  Sex: Male
  Weight: 71.8 kg

DRUGS (8)
  1. INSULIN [Concomitant]
  2. PAXIL [Concomitant]
  3. AVANDIA [Suspect]
     Indication: TYPE 2 DIABETES MELLITUS
     Dosage: 4MG PER DAY
     Route: 048
     Dates: start: 20000101, end: 20070101
  4. AVANDARYL [Suspect]
     Indication: TYPE 2 DIABETES MELLITUS
     Route: 048
     Dates: start: 20070101, end: 20080101
  5. GLUCOPHAGE [Concomitant]
     Dates: start: 20070101
  6. AVANDAMET [Suspect]
     Indication: DIABETES MELLITUS
     Route: 048
  7. METFORMIN HCL [Concomitant]
     Dates: start: 20070101
  8. GLUCOTROL [Concomitant]

REACTIONS (7)
  - MYOCARDIAL INFARCTION [None]
  - ANXIETY [None]
  - AMNESIA [None]
  - DEPRESSION [None]
  - MENTAL DISORDER [None]
  - CORONARY ARTERY DISEASE [None]
  - CEREBROVASCULAR ACCIDENT [None]
